FAERS Safety Report 17487034 (Version 1)
Quarter: 2020Q1

REPORT INFORMATION
  Report Type: Spontaneous
  Country: US (occurrence: US)
  Receive Date: 20200303
  Receipt Date: 20200303
  Transmission Date: 20200409
  Serious: No
  Sender: FDA-Public Use
  Company Number: US-MYLANLABS-2020M1018687

PATIENT
  Sex: Female
  Weight: 59 kg

DRUGS (1)
  1. NITROGLYCERIN TRANSDERMAL DELIVERY SYSTEM [Suspect]
     Active Substance: NITROGLYCERIN
     Indication: ANGINA PECTORIS
     Dosage: ONE EVERY 12 HOURS
     Route: 062

REACTIONS (3)
  - Product quality issue [Unknown]
  - Pain of skin [Recovered/Resolved]
  - Application site erythema [Recovered/Resolved]
